FAERS Safety Report 5939280-X (Version None)
Quarter: 2008Q4

REPORT INFORMATION
  Report Type: 
  Country: None (occurrence: None)
  Receive Date: 20081103
  Receipt Date: 20081022
  Transmission Date: 20090506
  Serious: Yes (Other)
  Sender: FDA-Public Use
  Company Number: US-PFIZER INC-2008088540

PATIENT
  Sex: Female

DRUGS (11)
  1. LYRICA [Suspect]
     Indication: FIBROMYALGIA
     Dates: start: 20080501, end: 20081019
  2. LYRICA [Suspect]
     Indication: PAIN
  3. VALPROIC ACID [Concomitant]
  4. PROPOXYPHENE [Concomitant]
  5. LEVOTHYROXINE SODIUM [Concomitant]
  6. PAXIL [Concomitant]
  7. ACIPHEX [Concomitant]
  8. ACETYLSALICYLIC ACID SRT [Concomitant]
  9. MULTI-VITAMINS [Concomitant]
  10. NYQUIL [Concomitant]
  11. VITAMIN B COMPLEX CAP [Concomitant]

REACTIONS (3)
  - ARTHRITIS [None]
  - PAIN [None]
  - TRIGGER FINGER [None]
